FAERS Safety Report 11927742 (Version 1)
Quarter: 2016Q1

REPORT INFORMATION
  Report Type: Spontaneous
  Country: PL (occurrence: PL)
  Receive Date: 20160119
  Receipt Date: 20160119
  Transmission Date: 20160526
  Serious: Yes (Life-Threatening)
  Sender: FDA-Public Use
  Company Number: PL-TEVA-625456ACC

PATIENT
  Age: 62 Year
  Sex: Male
  Weight: 57.5 kg

DRUGS (6)
  1. NAVIREL [Suspect]
     Active Substance: VINORELBINE TARTRATE
     Indication: LUNG NEOPLASM MALIGNANT
     Dosage: DOSE: 49.51; DOSE UNIT: NOT SPECIFIED
     Route: 042
     Dates: start: 20151113, end: 20151113
  2. NAVIREL [Suspect]
     Active Substance: VINORELBINE TARTRATE
     Indication: BRONCHIAL CARCINOMA
     Dosage: DOSE: 49.51; DOSE UNIT: NOT SPECIFIED
     Route: 042
     Dates: start: 20151106, end: 20151106
  3. NAVIREL [Suspect]
     Active Substance: VINORELBINE TARTRATE
     Indication: CHEMOTHERAPY
  4. CISPLATIN TEVA [Suspect]
     Active Substance: CISPLATIN
     Indication: LUNG NEOPLASM MALIGNANT
  5. CISPLATIN TEVA [Suspect]
     Active Substance: CISPLATIN
     Indication: BRONCHIAL CARCINOMA
     Dosage: DOSE: 132.04; DOSE UNIT: NOT SPECIFIED
     Route: 042
     Dates: start: 20151106, end: 20151106
  6. CISPLATIN TEVA [Suspect]
     Active Substance: CISPLATIN
     Indication: CHEMOTHERAPY

REACTIONS (4)
  - Dyspnoea [Unknown]
  - Asthenia [Unknown]
  - Neutropenia [Unknown]
  - Leukopenia [Unknown]

NARRATIVE: CASE EVENT DATE: 20151126
